FAERS Safety Report 10084239 (Version 3)
Quarter: 2014Q2

REPORT INFORMATION
  Report Type: Report from Study
  Country: CA (occurrence: CA)
  Receive Date: 20140417
  Receipt Date: 20140530
  Transmission Date: 20141212
  Serious: Yes (Other)
  Sender: FDA-Public Use
  Company Number: CA-BAYER-2014-049803

PATIENT
  Age: 24 Year
  Sex: Female
  Weight: 63.5 kg

DRUGS (13)
  1. MIRENA [Suspect]
     Indication: MENORRHAGIA
     Dosage: 20 MCG/24HR, CONT
     Route: 015
     Dates: start: 20131029, end: 20140328
  2. MIRENA [Suspect]
     Indication: MENORRHAGIA
     Dosage: 20 MCG/24HR, CONT
     Route: 015
  3. CALCIUM [Concomitant]
     Dosage: 1000 MG, BID
     Route: 048
  4. CEFTAZIDIME [Concomitant]
     Dosage: 1 G, DAILY
     Route: 033
  5. DOCUSATE SODIUM [Concomitant]
     Dosage: 100 MG, BID
     Route: 048
  6. FERROUS FUMARATE [Concomitant]
     Dosage: 600 MG, EVERY NIGHT
     Route: 048
  7. LABETALOL [Concomitant]
     Dosage: 200 MG BID
  8. NIFEDIPINE XL [Concomitant]
     Dosage: 90 MG, DAILY
     Route: 048
  9. PANTOPRAZOLE [Concomitant]
     Dosage: 40 MG, DAILY
     Route: 048
  10. RAMIPRIL [Concomitant]
     Dosage: 10 MG, DAILY
     Route: 048
  11. ROSUVASTATIN [Concomitant]
     Dosage: 5 MG, EVERY NIGHT
     Route: 048
  12. SENNOSIDE [Concomitant]
     Dosage: 2 DF, EVERY NIGHT
     Route: 048
  13. SPIRONOLACTONE [Concomitant]
     Dosage: 25 MG, DAILY
     Route: 048

REACTIONS (4)
  - Haemorrhagic anaemia [None]
  - Amenorrhoea [Unknown]
  - Drug ineffective [None]
  - Device expulsion [Recovered/Resolved]
